FAERS Safety Report 21892647 (Version 2)
Quarter: 2023Q1

REPORT INFORMATION
  Report Type: Spontaneous
  Country: FR (occurrence: FR)
  Receive Date: 20230120
  Receipt Date: 20230328
  Transmission Date: 20230418
  Serious: Yes (Life-Threatening)
  Sender: FDA-Public Use
  Company Number: None

PATIENT
  Age: 20 Year
  Sex: Female
  Weight: 67 kg

DRUGS (2)
  1. NOREPINEPHRINE [Suspect]
     Active Substance: NOREPINEPHRINE
     Indication: Product used for unknown indication
     Dosage: 16 MILLIGRAM
     Route: 042
     Dates: start: 20220916, end: 20220916
  2. PHLOROGLUCINOL\1,3,5-TRIMETHOXYBENZENE [Suspect]
     Active Substance: PHLOROGLUCINOL\1,3,5-TRIMETHOXYBENZENE
     Indication: Product used for unknown indication
     Dosage: UNK, NOT ADMINISTERED
     Route: 065

REACTIONS (7)
  - Pulmonary alveolar haemorrhage [Recovering/Resolving]
  - Troponin increased [Recovered/Resolved]
  - Vasoconstriction [Recovered/Resolved]
  - Acute pulmonary oedema [Recovering/Resolving]
  - Chest pain [Recovered/Resolved]
  - Tachycardia [Recovered/Resolved]
  - Wrong product administered [Recovered/Resolved]

NARRATIVE: CASE EVENT DATE: 20220916
